FAERS Safety Report 24886966 (Version 1)
Quarter: 2025Q1

REPORT INFORMATION
  Report Type: Spontaneous
  Country: US (occurrence: US)
  Receive Date: 20250127
  Receipt Date: 20250127
  Transmission Date: 20250409
  Serious: Yes (Other)
  Sender: NOVO NORDISK
  Company Number: US-NOVOPROD-1352723

PATIENT
  Sex: Female

DRUGS (1)
  1. OZEMPIC [Suspect]
     Active Substance: SEMAGLUTIDE
     Indication: Renal disorder prophylaxis
     Route: 058

REACTIONS (3)
  - Chronic kidney disease [Unknown]
  - Condition aggravated [Unknown]
  - Product use in unapproved indication [Unknown]
